FAERS Safety Report 21898616 (Version 1)
Quarter: 2023Q1

REPORT INFORMATION
  Report Type: Spontaneous
  Country: US (occurrence: None)
  Receive Date: 20230120
  Receipt Date: 20230120
  Transmission Date: 20230418
  Serious: Yes (Other)
  Sender: FDA-Public Use
  Company Number: None

PATIENT
  Sex: Male

DRUGS (2)
  1. KESIMPTA [Suspect]
     Active Substance: OFATUMUMAB
     Indication: Multiple sclerosis
     Dosage: 20 MG/0.4ML  SUBCUTANEOUS ??RX: INJECT 1 PEN UNDER THE SKIN (SUBCUTANEOUS INJECTION) MONTHLY STARTIN
     Route: 058
     Dates: start: 20220601
  2. KESIMPTA [Suspect]
     Active Substance: OFATUMUMAB
     Dosage: OTHER QUANTITY : 1 PEN ;?FREQUENCY : MONTHLY;?
     Route: 058

REACTIONS (3)
  - Mobility decreased [None]
  - Fall [None]
  - Lower limb fracture [None]
